FAERS Safety Report 12030516 (Version 3)
Quarter: 2016Q2

REPORT INFORMATION
  Report Type: Report from Study
  Country: TW (occurrence: TW)
  Receive Date: 20160207
  Receipt Date: 20160404
  Transmission Date: 20160815
  Serious: Yes (Hospitalization, Other)
  Sender: FDA-Public Use
  Company Number: PHHY2016TW013426

PATIENT
  Age: 49 Year
  Sex: Male

DRUGS (7)
  1. MEXITIL [Concomitant]
     Active Substance: MEXILETINE HYDROCHLORIDE
     Indication: ARRHYTHMIA
     Dosage: 300 MG, UNK
     Route: 048
     Dates: start: 20150806
  2. GILENYA [Suspect]
     Active Substance: FINGOLIMOD HYDROCHLORIDE
     Indication: MULTIPLE SCLEROSIS
     Dosage: 0.5 MG, UNK
     Route: 048
     Dates: start: 20150907
  3. SINOMIN [Concomitant]
     Indication: ANTIBIOTIC THERAPY
     Dosage: 4 GTT, UNK
     Route: 061
     Dates: start: 20150119
  4. SURGAM [Concomitant]
     Active Substance: TIAPROFENIC ACID
     Indication: ANALGESIC THERAPY
     Dosage: 400 MG, UNK
     Route: 048
     Dates: start: 20151014
  5. METFORMIN [Concomitant]
     Active Substance: METFORMIN HYDROCHLORIDE
     Indication: DIABETES MELLITUS
     Dosage: 1500 MG, UNK
     Route: 048
     Dates: start: 20150728
  6. VISCONE [Concomitant]
     Indication: ANTIINFLAMMATORY THERAPY
     Dosage: 4 GTT, UNK
     Route: 061
     Dates: start: 20150119
  7. CRESTOR [Concomitant]
     Active Substance: ROSUVASTATIN CALCIUM
     Indication: HYPERLIPIDAEMIA
     Dosage: 100 MG, UNK
     Route: 048
     Dates: start: 20151027

REACTIONS (7)
  - Monocyte count increased [Unknown]
  - White matter lesion [Unknown]
  - Lymphocyte count decreased [Unknown]
  - Diplopia [Recovered/Resolved]
  - Cataract [Unknown]
  - Cerebral atrophy [Unknown]
  - Neutrophil count increased [Unknown]

NARRATIVE: CASE EVENT DATE: 20160127
